FAERS Safety Report 8592339-3 (Version None)
Quarter: 2012Q3

REPORT INFORMATION
  Report Type: 
  Country: None (occurrence: None)
  Receive Date: 20120814
  Receipt Date: 20120731
  Transmission Date: 20120928
  Serious: Yes (Other)
  Sender: FDA-Public Use
  Company Number: US-ASTRAZENECA-2012SE54167

PATIENT
  Age: 34 Year
  Sex: Female

DRUGS (4)
  1. ENTOCORT EC [Suspect]
     Indication: MASTOCYTOSIS
     Route: 048
     Dates: start: 20110101
  2. PREDNISONE TAB [Concomitant]
  3. ENTOCORT EC [Suspect]
     Indication: CROHN'S DISEASE
     Route: 048
     Dates: start: 20110101
  4. ANOTHER MEDICATION [Concomitant]

REACTIONS (3)
  - THROAT TIGHTNESS [None]
  - BONE DENSITY DECREASED [None]
  - REACTION TO DRUG EXCIPIENTS [None]
